FAERS Safety Report 22337637 (Version 1)
Quarter: 2023Q2

REPORT INFORMATION
  Report Type: Spontaneous
  Country: US (occurrence: None)
  Receive Date: 20230517
  Receipt Date: 20230517
  Transmission Date: 20230722
  Serious: No
  Sender: FDA-Public Use
  Company Number: None

PATIENT
  Age: 30 Year
  Sex: Female
  Weight: 182.25 kg

DRUGS (1)
  1. TEMOZOLOMIDE [Suspect]
     Active Substance: TEMOZOLOMIDE
     Dosage: OTHER FREQUENCY : QD DAYS1-5 Q28DAYS;?
     Route: 048
     Dates: start: 20220915

REACTIONS (2)
  - Vomiting [None]
  - Inappropriate schedule of product administration [None]
